FAERS Safety Report 16722743 (Version 2)
Quarter: 2020Q1

REPORT INFORMATION
  Report Type: Report from Study
  Country: None (occurrence: US)
  Receive Date: 20190821
  Receipt Date: 20200306
  Transmission Date: 20200409
  Serious: Yes (Hospitalization, Other)
  Sender: FDA-Public Use
  Company Number: US-ABBVIE-19K-163-2889792-00

PATIENT
  Age: 59 Year
  Sex: Male

DRUGS (1)
  1. HUMIRA [Suspect]
     Active Substance: ADALIMUMAB
     Indication: COLITIS ULCERATIVE
     Route: 058

REACTIONS (11)
  - Abdominal pain upper [Recovering/Resolving]
  - Dementia [Recovering/Resolving]
  - Dehydration [Recovering/Resolving]
  - Therapeutic response shortened [Recovering/Resolving]
  - Gastric ulcer [Recovering/Resolving]
  - Loss of consciousness [Unknown]
  - Hospitalisation [Unknown]
  - Nausea [Recovering/Resolving]
  - Colitis ulcerative [Recovering/Resolving]
  - Atrial fibrillation [Recovering/Resolving]
  - Vertigo [Recovering/Resolving]

NARRATIVE: CASE EVENT DATE: 20190615
